FAERS Safety Report 4293470-3 (Version None)
Quarter: 2004Q1

REPORT INFORMATION
  Report Type: 
  Country: None (occurrence: None)
  Receive Date: 20040210
  Receipt Date: 20040129
  Transmission Date: 20041129
  Serious: Yes (Life-Threatening, Hospitalization)
  Sender: FDA-Public Use
  Company Number: 04P-056-0249155-00

PATIENT
  Age: 77 Year
  Sex: Male
  Weight: 71 kg

DRUGS (4)
  1. BIAXIN [Suspect]
     Indication: NASAL POLYPS
     Dosage: PER ORAL
     Route: 048
     Dates: start: 20030922, end: 20031002
  2. PREDNISONE [Concomitant]
  3. ATORVASTATIN [Concomitant]
  4. TAMSULOSIN [Concomitant]

REACTIONS (8)
  - CYTOLYTIC HEPATITIS [None]
  - DEEP VEIN THROMBOSIS [None]
  - DIARRHOEA [None]
  - DYSPNOEA [None]
  - HEPATIC LESION [None]
  - LUNG DISORDER [None]
  - PULMONARY EMBOLISM [None]
  - VOMITING [None]
